FAERS Safety Report 9747701 (Version 1)
Quarter: 2013Q4

REPORT INFORMATION
  Report Type: Spontaneous
  Country: US (occurrence: None)
  Receive Date: 20131211
  Receipt Date: 20131211
  Transmission Date: 20140711
  Serious: No
  Sender: FDA-Public Use
  Company Number: None

PATIENT
  Age: 29 Year
  Sex: Female
  Weight: 63.5 kg

DRUGS (1)
  1. CEPHALEXIN [Suspect]
     Indication: URINARY TRACT INFECTION
     Dosage: 20 TWICE DAILY, TAKEN BY MOUTH
     Dates: start: 20131113, end: 20131123

REACTIONS (5)
  - Diarrhoea [None]
  - Abdominal pain upper [None]
  - Flatulence [None]
  - Abdominal distension [None]
  - Pyrexia [None]
